FAERS Safety Report 16542582 (Version 2)
Quarter: 2019Q3

REPORT INFORMATION
  Report Type: Spontaneous
  Country: US (occurrence: US)
  Receive Date: 20190709
  Receipt Date: 20190829
  Transmission Date: 20191004
  Serious: Yes (Other)
  Sender: FDA-Public Use
  Company Number: US-ASTRAZENECA-2019SE96316

PATIENT
  Age: 20902 Day
  Sex: Male
  Weight: 112 kg

DRUGS (13)
  1. SPIRIVA [Concomitant]
     Active Substance: TIOTROPIUM BROMIDE MONOHYDRATE
  2. DEXILANT [Suspect]
     Active Substance: DEXLANSOPRAZOLE
     Route: 065
     Dates: start: 2018
  3. GABAPENTIN. [Concomitant]
     Active Substance: GABAPENTIN
  4. PRILOSEC [Suspect]
     Active Substance: OMEPRAZOLE MAGNESIUM
     Route: 048
     Dates: start: 1983, end: 2014
  5. TAGAMET [Concomitant]
     Active Substance: CIMETIDINE
  6. QUINAPRIL. [Concomitant]
     Active Substance: QUINAPRIL
  7. NEXIUM [Suspect]
     Active Substance: ESOMEPRAZOLE MAGNESIUM
     Route: 048
     Dates: start: 1983, end: 2014
  8. PEPCID [Concomitant]
     Active Substance: FAMOTIDINE
  9. ASPIRIN. [Concomitant]
     Active Substance: ASPIRIN
  10. IBUPROFEN. [Concomitant]
     Active Substance: IBUPROFEN
  11. DICLOFENAC [Concomitant]
     Active Substance: DICLOFENAC
  12. CITALOPRAM [Concomitant]
     Active Substance: CITALOPRAM HYDROBROMIDE
  13. ZANTAC [Concomitant]
     Active Substance: RANITIDINE HYDROCHLORIDE

REACTIONS (1)
  - Chronic kidney disease [Not Recovered/Not Resolved]

NARRATIVE: CASE EVENT DATE: 20151015
